FAERS Safety Report 18526826 (Version 2)
Quarter: 2021Q1

REPORT INFORMATION
  Report Type: Spontaneous
  Country: US (occurrence: US)
  Receive Date: 20201120
  Receipt Date: 20210101
  Transmission Date: 20210419
  Serious: No
  Sender: FDA-Public Use
  Company Number: US-ASTRAZENECA-2020SF41754

PATIENT
  Sex: Male
  Weight: 90.7 kg

DRUGS (4)
  1. BEVESPI AEROSPHERE [Suspect]
     Active Substance: FORMOTEROL FUMARATE\GLYCOPYRROLATE
     Indication: LUNG DISORDER
     Dosage: UNKNOWN,TWO INHALATIONS TWICE DAILY
     Route: 055
     Dates: start: 20201021
  2. BEVESPI AEROSPHERE [Suspect]
     Active Substance: FORMOTEROL FUMARATE\GLYCOPYRROLATE
     Indication: LUNG DISORDER
     Dosage: UNKNOWN,TWO INHALATIONS TWICE DAILY
     Route: 055
     Dates: start: 20201021
  3. BEVESPI AEROSPHERE [Suspect]
     Active Substance: FORMOTEROL FUMARATE\GLYCOPYRROLATE
     Indication: CHRONIC OBSTRUCTIVE PULMONARY DISEASE
     Dosage: UNKNOWN,TWO INHALATIONS TWICE DAILY
     Route: 055
     Dates: start: 20201021
  4. BEVESPI AEROSPHERE [Suspect]
     Active Substance: FORMOTEROL FUMARATE\GLYCOPYRROLATE
     Indication: EMPHYSEMA
     Dosage: UNKNOWN,TWO INHALATIONS TWICE DAILY
     Route: 055
     Dates: start: 20201021

REACTIONS (3)
  - Dyspnoea [Unknown]
  - Intentional product misuse [Unknown]
  - Device delivery system issue [Unknown]
